FAERS Safety Report 13234982 (Version 1)
Quarter: 2017Q1

REPORT INFORMATION
  Report Type: Spontaneous
  Country: US (occurrence: US)
  Receive Date: 20170215
  Receipt Date: 20170215
  Transmission Date: 20170428
  Serious: No
  Sender: FDA-Public Use
  Company Number: US-IGSA-GBI004242

PATIENT
  Age: 64 Year
  Sex: Male

DRUGS (6)
  1. FENTANYL. [Concomitant]
     Active Substance: FENTANYL
     Indication: PAIN
  2. PROFILNINE SD [Suspect]
     Active Substance: FACTOR IX COMPLEX
     Indication: PROCOAGULANT THERAPY
  3. NORMAL SALINE [Concomitant]
     Active Substance: SODIUM CHLORIDE
  4. LIDOCAINE. [Concomitant]
     Active Substance: LIDOCAINE
     Indication: PAIN
  5. RIVAROXABAN [Concomitant]
     Active Substance: RIVAROXABAN
     Indication: DEEP VEIN THROMBOSIS
     Route: 048
  6. CLOPIDOGREL [Concomitant]
     Active Substance: CLOPIDOGREL BISULFATE
     Indication: ACUTE MYOCARDIAL INFARCTION

REACTIONS (2)
  - Drug administered at inappropriate site [Unknown]
  - Infusion related reaction [Unknown]
